FAERS Safety Report 15484191 (Version 1)
Quarter: 2018Q4

REPORT INFORMATION
  Report Type: Spontaneous
  Country: US (occurrence: US)
  Receive Date: 20181010
  Receipt Date: 20181010
  Transmission Date: 20190205
  Serious: No
  Sender: FDA-Public Use
  Company Number: None

PATIENT
  Age: 35 Year
  Sex: Female
  Weight: 76.5 kg

DRUGS (1)
  1. GONAL-F RFF [Suspect]
     Active Substance: FOLLITROPIN
     Indication: INFERTILITY
     Dosage: ?          QUANTITY:1 INJECTION(S);?
     Route: 058

REACTIONS (11)
  - Migraine [None]
  - Middle insomnia [None]
  - Fat redistribution [None]
  - Limb discomfort [None]
  - Vision blurred [None]
  - Loss of personal independence in daily activities [None]
  - Nausea [None]
  - Arthralgia [None]
  - Weight increased [None]
  - Initial insomnia [None]
  - Fluid retention [None]

NARRATIVE: CASE EVENT DATE: 20181008
